FAERS Safety Report 7351076-3 (Version None)
Quarter: 2011Q1

REPORT INFORMATION
  Report Type: 
  Country: None (occurrence: None)
  Receive Date: 20110314
  Receipt Date: 20110228
  Transmission Date: 20110831
  Serious: Yes (Other)
  Sender: FDA-Public Use
  Company Number: US-BAYER-201023998NA

PATIENT
  Sex: Female
  Weight: 79.819 kg

DRUGS (9)
  1. ASPIRIN [Concomitant]
  2. YAZ [Suspect]
     Indication: PRODUCT USED FOR UNKNOWN INDICATION
     Route: 048
     Dates: start: 20040601, end: 20050615
  3. PROTONIX [Concomitant]
  4. XANAX [Concomitant]
  5. PLAVIX [Concomitant]
  6. ANTIBIOTICS [Concomitant]
  7. YASMIN [Suspect]
     Indication: PRODUCT USED FOR UNKNOWN INDICATION
     Route: 048
     Dates: start: 20040601, end: 20050615
  8. LEXAPRO [Concomitant]
  9. OCELLA [Suspect]
     Indication: PRODUCT USED FOR UNKNOWN INDICATION
     Route: 048
     Dates: start: 20040601, end: 20050615

REACTIONS (4)
  - PARAESTHESIA [None]
  - DEAFNESS UNILATERAL [None]
  - ISCHAEMIC STROKE [None]
  - DEEP VEIN THROMBOSIS [None]
